FAERS Safety Report 7542788-7 (Version None)
Quarter: 2011Q2

REPORT INFORMATION
  Report Type: 
  Country: None (occurrence: None)
  Receive Date: 20110613
  Receipt Date: 20110606
  Transmission Date: 20111010
  Serious: Yes (Other)
  Sender: FDA-Public Use
  Company Number: US-JNJFOC-20110603807

PATIENT
  Age: 2 Year
  Sex: Male

DRUGS (2)
  1. BENADRYL [Suspect]
     Route: 065
  2. BENADRYL [Suspect]
     Indication: PRODUCT USED FOR UNKNOWN INDICATION
     Route: 065

REACTIONS (4)
  - WRONG DRUG ADMINISTERED [None]
  - DYSPNOEA [None]
  - HEART RATE INCREASED [None]
  - DIZZINESS [None]
